FAERS Safety Report 10419320 (Version 1)
Quarter: 2014Q2

REPORT INFORMATION
  Report Type: Report from Study
  Country: US (occurrence: None)
  Receive Date: 20140627
  Receipt Date: 20140627
  Transmission Date: 20141212
  Serious: No
  Sender: FDA-Public Use
  Company Number: CABO 14004116

PATIENT
  Age: 28 Year
  Sex: Male

DRUGS (3)
  1. COMETRIQ  (CARBOZANTINIB) CAPSULE [Suspect]
     Indication: THYROID CANCER
     Route: 048
     Dates: start: 20140311
  2. LEVOTHYROXINE (LEVOTHYROXINE) [Concomitant]
  3. DIPHEN-ATROPINE (ATROPINE SULFATE, DIPHENOXYLATE  HYDROCHLORIDE) [Concomitant]

REACTIONS (9)
  - Skin discolouration [None]
  - Acne [None]
  - Memory impairment [None]
  - Dry mouth [None]
  - Stomatitis [None]
  - Rash [None]
  - Nausea [None]
  - Blister [None]
  - Hair colour changes [None]
